FAERS Safety Report 20495890 (Version 1)
Quarter: 2022Q1

REPORT INFORMATION
  Report Type: Report from Study
  Country: CN (occurrence: CN)
  Receive Date: 20220221
  Receipt Date: 20220221
  Transmission Date: 20220423
  Serious: Yes (Other)
  Sender: FDA-Public Use
  Company Number: CN-JNJFOC-20220223609

PATIENT

DRUGS (5)
  1. BORTEZOMIB [Suspect]
     Active Substance: BORTEZOMIB
     Indication: Castleman^s disease
     Dosage: 1.3 MILLIGRAM/SQ. METER, 1/WEEK
     Route: 058
  2. BORTEZOMIB [Suspect]
     Active Substance: BORTEZOMIB
     Dosage: 1.3 MILLIGRAM/SQ. METER, 2/WEEK
     Route: 058
  3. DEXAMETHASONE [Suspect]
     Active Substance: DEXAMETHASONE
     Indication: Castleman^s disease
     Dosage: 40 MILLIGRAM, 1/WEEK
     Route: 048
  4. DEXAMETHASONE [Suspect]
     Active Substance: DEXAMETHASONE
     Dosage: 20 MILLIGRAM, 2/WEEK
     Route: 048
  5. CYCLOPHOSPHAMIDE [Suspect]
     Active Substance: CYCLOPHOSPHAMIDE
     Indication: Castleman^s disease
     Dosage: 300 MILLIGRAM/SQ. METER, 1/WEEK
     Route: 048

REACTIONS (18)
  - Neutropenia [Unknown]
  - Thrombocytopenia [Unknown]
  - Fatigue [Unknown]
  - Decreased appetite [Unknown]
  - Pyrexia [Unknown]
  - Weight decreased [Unknown]
  - Peripheral sensory neuropathy [Unknown]
  - Nausea [Unknown]
  - Diarrhoea [Unknown]
  - Constipation [Unknown]
  - Upper respiratory tract infection [Unknown]
  - Glucose tolerance impaired [Unknown]
  - Menstruation irregular [Unknown]
  - Vomiting [Unknown]
  - Insomnia [Unknown]
  - Alanine aminotransferase increased [Unknown]
  - Off label use [Unknown]
  - Product use in unapproved indication [Unknown]
